FAERS Safety Report 6505340-8 (Version None)
Quarter: 2009Q4

REPORT INFORMATION
  Report Type: 
  Country: None (occurrence: None)
  Receive Date: 20091218
  Receipt Date: 20091214
  Transmission Date: 20100525
  Serious: Yes (Death, Hospitalization)
  Sender: FDA-Public Use
  Company Number: NL-CELGENEUS-114-50794-09110442

PATIENT
  Sex: Male
  Weight: 65 kg

DRUGS (4)
  1. VIDAZA [Suspect]
     Route: 058
     Dates: start: 20090901, end: 20090908
  2. VIDAZA [Suspect]
     Route: 058
     Dates: start: 20091006
  3. CIPROFLOXACIN HCL [Concomitant]
     Indication: PROPHYLAXIS
     Route: 065
     Dates: start: 20090101
  4. POSACONAZOLE [Concomitant]
     Indication: PROPHYLAXIS
     Route: 065
     Dates: start: 20090101

REACTIONS (3)
  - ACUTE MYELOID LEUKAEMIA [None]
  - FEBRILE NEUTROPENIA [None]
  - PANCYTOPENIA [None]
